FAERS Safety Report 12812343 (Version 2)
Quarter: 2017Q1

REPORT INFORMATION
  Report Type: Spontaneous
  Country: CA (occurrence: CA)
  Receive Date: 20161005
  Receipt Date: 20170201
  Transmission Date: 20170428
  Serious: Yes (Other)
  Sender: FDA-Public Use
  Company Number: CA-TEVA-697924ACC

PATIENT
  Age: 42 Year
  Sex: Female

DRUGS (1)
  1. CO-LEVOFLOXACIN [Suspect]
     Active Substance: LEVOFLOXACIN
     Indication: BRONCHITIS
     Dosage: 500 MILLIGRAM DAILY; PRESCRIBED FOR 10 DAYS
     Route: 048
     Dates: start: 20160411, end: 201604

REACTIONS (9)
  - Visual impairment [Not Recovered/Not Resolved]
  - Impaired work ability [Unknown]
  - Ligament rupture [Not Recovered/Not Resolved]
  - Muscle spasms [Not Recovered/Not Resolved]
  - Paraesthesia [Not Recovered/Not Resolved]
  - Joint crepitation [Not Recovered/Not Resolved]
  - Abasia [Not Recovered/Not Resolved]
  - Pain in extremity [Not Recovered/Not Resolved]
  - Pain [Not Recovered/Not Resolved]

NARRATIVE: CASE EVENT DATE: 201604
